FAERS Safety Report 16734378 (Version 1)
Quarter: 2019Q3

REPORT INFORMATION
  Report Type: Spontaneous
  Country: US (occurrence: US)
  Receive Date: 20190823
  Receipt Date: 20190823
  Transmission Date: 20191005
  Serious: Yes (Other)
  Sender: FDA-Public Use
  Company Number: US-PAREXEL-2019US001914

PATIENT

DRUGS (2)
  1. ELIGARD [Suspect]
     Active Substance: LEUPROLIDE ACETATE
     Indication: PROSTATE CANCER
     Dosage: 45 MG, 6 MONTH DOSE
     Route: 058
     Dates: start: 20180920
  2. GABAPENTIN. [Concomitant]
     Active Substance: GABAPENTIN
     Indication: DIABETIC NEUROPATHY

REACTIONS (4)
  - Drug ineffective [Unknown]
  - Prostatic specific antigen increased [Unknown]
  - Blood testosterone increased [Unknown]
  - Erectile dysfunction [Unknown]
